FAERS Safety Report 7178432-0 (Version None)
Quarter: 2010Q4

REPORT INFORMATION
  Report Type: 
  Country: None (occurrence: None)
  Receive Date: 20101220
  Receipt Date: 20101208
  Transmission Date: 20110411
  Serious: Yes (Hospitalization)
  Sender: FDA-Public Use
  Company Number: FR-WATSON-2010-15609

PATIENT
  Age: 75 Year
  Sex: Male

DRUGS (3)
  1. LAMOTRIGINE [Suspect]
     Indication: GRAND MAL CONVULSION
     Dosage: 100 MG, DAILY, AT DAY 30
  2. LAMOTRIGINE [Suspect]
     Dosage: 50 MG, DAILY, AT DAY 16
  3. LAMOTRIGINE [Suspect]
     Dosage: 25 MG, DAILY TO START

REACTIONS (3)
  - DRUG RASH WITH EOSINOPHILIA AND SYSTEMIC SYMPTOMS [None]
  - HEPATITIS [None]
  - PANCREATITIS [None]
